FAERS Safety Report 4524975-5 (Version None)
Quarter: 2004Q4

REPORT INFORMATION
  Report Type: 
  Country: None (occurrence: None)
  Receive Date: 20041117
  Receipt Date: 20030620
  Transmission Date: 20050328
  Serious: Yes (Other)
  Sender: FDA-Public Use
  Company Number: C2003-1537.01

PATIENT
  Age: 47 Year
  Sex: Female

DRUGS (5)
  1. CLOZAPINE [Suspect]
     Indication: SCHIZOPHRENIA, PARANOID TYPE
     Dosage: 300MG Q HS, ORAL
     Route: 048
     Dates: start: 20030601
  2. CLONAZEPAM [Concomitant]
  3. GABAPENTIN [Concomitant]
  4. QUETIAPINE FUMARATE [Concomitant]
  5. ZOLPIDEM TARTRATE [Concomitant]

REACTIONS (3)
  - DRY MOUTH [None]
  - DYSARTHRIA [None]
  - SWOLLEN TONGUE [None]
